FAERS Safety Report 18518593 (Version 1)
Quarter: 2020Q4

REPORT INFORMATION
  Report Type: Spontaneous
  Country: US (occurrence: US)
  Receive Date: 20201118
  Receipt Date: 20201118
  Transmission Date: 20210114
  Serious: No
  Sender: FDA-Public Use
  Company Number: US-PFIZER INC-2020450702

PATIENT
  Age: 43 Year
  Sex: Female
  Weight: 66.22 kg

DRUGS (2)
  1. OMEPRAZOLE. [Concomitant]
     Active Substance: OMEPRAZOLE
     Indication: DYSPEPSIA
     Dosage: 40 MG
  2. CHANTIX [Suspect]
     Active Substance: VARENICLINE TARTRATE
     Indication: SMOKING CESSATION THERAPY
     Dosage: UNK
     Dates: start: 2015, end: 2016

REACTIONS (4)
  - Cardiac disorder [Unknown]
  - Nausea [Unknown]
  - Arteriosclerosis coronary artery [Unknown]
  - Treatment noncompliance [Unknown]
